FAERS Safety Report 6938095-3 (Version None)
Quarter: 2010Q3

REPORT INFORMATION
  Report Type: 
  Country: None (occurrence: None)
  Receive Date: 20100824
  Receipt Date: 20100817
  Transmission Date: 20110219
  Serious: Yes (Death, Hospitalization, Other)
  Sender: FDA-Public Use
  Company Number: IT-ELI_LILLY_AND_COMPANY-IT201007005516

PATIENT
  Age: 65 Year
  Sex: Male

DRUGS (11)
  1. ALIMTA [Suspect]
     Indication: LUNG ADENOCARCINOMA
     Dosage: 900 MG, EVERY 21 DAYS
     Route: 042
     Dates: start: 20100510, end: 20100621
  2. CISPLATIN [Concomitant]
     Indication: LUNG ADENOCARCINOMA
     Dosage: 130 MG, EVERY 21 DAYS
     Dates: start: 20100510, end: 20100621
  3. FOLIC ACID [Concomitant]
     Indication: PREMEDICATION
     Dosage: 1 D/F, AS NEEDED
  4. DOBETIN [Concomitant]
     Indication: VITAMIN SUPPLEMENTATION
     Route: 030
  5. CORTICOSTEROIDS [Concomitant]
     Indication: PREMEDICATION
     Dosage: 4 MG, UNKNOWN
  6. SOLDESAM [Concomitant]
  7. SOLU-MEDROL [Concomitant]
  8. KYTRIL [Concomitant]
  9. LASIX [Concomitant]
  10. EPREX [Concomitant]
     Dosage: 40000 D/F, UNK
  11. FERLIXIT [Concomitant]

REACTIONS (11)
  - ABDOMINAL PAIN UPPER [None]
  - ASTHENIA [None]
  - BACK PAIN [None]
  - BLOOD CREATININE INCREASED [None]
  - DIARRHOEA [None]
  - GENERAL PHYSICAL HEALTH DETERIORATION [None]
  - HAEMATEMESIS [None]
  - METABOLIC ACIDOSIS [None]
  - NAUSEA [None]
  - PANCYTOPENIA [None]
  - PYREXIA [None]
